FAERS Safety Report 25699081 (Version 1)
Quarter: 2025Q3

REPORT INFORMATION
  Report Type: Report from Study
  Country: US (occurrence: US)
  Receive Date: 20250819
  Receipt Date: 20250819
  Transmission Date: 20251021
  Serious: Yes (Hospitalization)
  Sender: ROCHE
  Company Number: US-ROCHE-10000364692

PATIENT
  Age: 76 Year
  Sex: Male
  Weight: 98.1 kg

DRUGS (3)
  1. RITUXAN [Suspect]
     Active Substance: RITUXIMAB
     Indication: Product used for unknown indication
     Route: 065
  2. DABRAFENIB [Suspect]
     Active Substance: DABRAFENIB
     Indication: Hairy cell leukaemia
     Route: 048
     Dates: start: 20170615
  3. TRAMETINIB [Suspect]
     Active Substance: TRAMETINIB
     Indication: Hairy cell leukaemia
     Route: 048

REACTIONS (3)
  - Acute kidney injury [Recovering/Resolving]
  - Sepsis [Recovering/Resolving]
  - Urinary tract infection [Recovered/Resolved]

NARRATIVE: CASE EVENT DATE: 20250530
